FAERS Safety Report 22353240 (Version 1)
Quarter: 2023Q2

REPORT INFORMATION
  Report Type: Spontaneous
  Country: IT (occurrence: IT)
  Receive Date: 20230523
  Receipt Date: 20230523
  Transmission Date: 20230721
  Serious: Yes (Other)
  Sender: FDA-Public Use
  Company Number: None

PATIENT
  Age: 67 Year
  Sex: Male
  Weight: 76 kg

DRUGS (1)
  1. REMICADE [Suspect]
     Active Substance: INFLIXIMAB
     Indication: Psoriatic arthropathy
     Dosage: 5 MG/KG INFUSION EVERY 8 WEEKS
     Route: 042
     Dates: start: 20110608, end: 20230224

REACTIONS (1)
  - Follicular lymphoma [Unknown]

NARRATIVE: CASE EVENT DATE: 20230509
